FAERS Safety Report 25791814 (Version 3)
Quarter: 2025Q4

REPORT INFORMATION
  Report Type: Spontaneous
  Country: IL (occurrence: IL)
  Receive Date: 20250911
  Receipt Date: 20251001
  Transmission Date: 20260118
  Serious: Yes (Other)
  Sender: INCYTE
  Company Number: IL-002147023-NVSC2025IL134192

PATIENT
  Age: 75 Year
  Weight: 76 kg

DRUGS (5)
  1. RUXOLITINIB [Suspect]
     Active Substance: RUXOLITINIB
     Indication: Myelofibrosis
     Dosage: 15 MG
  2. PELABRESIB [Suspect]
     Active Substance: PELABRESIB
     Indication: Myelofibrosis
     Dosage: 125 MG
  3. PELABRESIB [Suspect]
     Active Substance: PELABRESIB
     Dosage: CYCLE 42
  4. PELABRESIB [Suspect]
     Active Substance: PELABRESIB
     Dosage: CYCLE 43
  5. PELABRESIB [Suspect]
     Active Substance: PELABRESIB
     Dosage: CYCLE 44

REACTIONS (1)
  - Squamous cell carcinoma [Recovered/Resolved]
